FAERS Safety Report 16775234 (Version 1)
Quarter: 2019Q3

REPORT INFORMATION
  Report Type: Report from Study
  Country: JP (occurrence: JP)
  Receive Date: 20190905
  Receipt Date: 20190905
  Transmission Date: 20191005
  Serious: Yes (Other)
  Sender: FDA-Public Use
  Company Number: JP-ACCORD-153581

PATIENT

DRUGS (4)
  1. CISPLATIN. [Suspect]
     Active Substance: CISPLATIN
     Indication: ADENOCARCINOMA PANCREAS
     Dosage: ON DAY 5, 12, 19, AND 26
  2. MITOMYCIN. [Suspect]
     Active Substance: MITOMYCIN
     Indication: ADENOCARCINOMA PANCREAS
     Dosage: ON DAY 6, 13, 20, AND 27
  3. HEPARIN [Suspect]
     Active Substance: HEPARIN SODIUM
     Indication: ADENOCARCINOMA PANCREAS
  4. FLUOROURACIL. [Suspect]
     Active Substance: FLUOROURACIL
     Indication: ADENOCARCINOMA PANCREAS

REACTIONS (1)
  - Anaemia [Unknown]
